FAERS Safety Report 19480022 (Version 1)
Quarter: 2021Q2

REPORT INFORMATION
  Report Type: Spontaneous
  Country: US (occurrence: US)
  Receive Date: 20210630
  Receipt Date: 20210630
  Transmission Date: 20210717
  Serious: No
  Sender: FDA-Public Use
  Company Number: US-FOUNDATIONCONSUMERHC-2020-US-025978

PATIENT
  Age: 21 Year
  Sex: Female
  Weight: 69.4 kg

DRUGS (2)
  1. NAIL AND HAIR VITAMIN [Concomitant]
  2. PLAN B ONE?STEP [Suspect]
     Active Substance: LEVONORGESTREL
     Indication: POST COITAL CONTRACEPTION
     Dosage: 1 TABLET X1 DOSE
     Route: 048
     Dates: start: 20201220, end: 20201220

REACTIONS (2)
  - Abdominal pain upper [Unknown]
  - Vaginal haemorrhage [Recovered/Resolved]

NARRATIVE: CASE EVENT DATE: 20201223
